FAERS Safety Report 12272726 (Version 1)
Quarter: 2016Q2

REPORT INFORMATION
  Report Type: Spontaneous
  Country: US (occurrence: US)
  Receive Date: 20160415
  Receipt Date: 20160415
  Transmission Date: 20160815
  Serious: Yes (Other)
  Sender: FDA-Public Use
  Company Number: US-NOVOPROD-476749

PATIENT
  Age: 59 Year
  Sex: Female
  Weight: 68.27 kg

DRUGS (5)
  1. TRESIBA [Suspect]
     Active Substance: INSULIN DEGLUDEC
     Dosage: 11 U, QD
     Route: 058
     Dates: start: 20160104
  2. TRESIBA [Suspect]
     Active Substance: INSULIN DEGLUDEC
     Dosage: 17 U, QD
     Route: 058
     Dates: start: 20160102, end: 20160103
  3. TRESIBA [Suspect]
     Active Substance: INSULIN DEGLUDEC
     Indication: TYPE 1 DIABETES MELLITUS
     Dosage: 24 U, QD
     Route: 058
     Dates: start: 20151229, end: 20160101
  4. TRESIBA [Suspect]
     Active Substance: INSULIN DEGLUDEC
     Dosage: 20 U, QD
     Route: 058
     Dates: start: 20160101, end: 20160102
  5. TRESIBA [Suspect]
     Active Substance: INSULIN DEGLUDEC
     Dosage: 14 U, QD
     Route: 058
     Dates: start: 20160103, end: 20160104

REACTIONS (2)
  - Blood glucose decreased [Recovering/Resolving]
  - Hypoglycaemic unconsciousness [Recovered/Resolved]

NARRATIVE: CASE EVENT DATE: 20151230
